FAERS Safety Report 9424291 (Version 1)
Quarter: 2013Q3

REPORT INFORMATION
  Report Type: Report from Study
  Country: US (occurrence: US)
  Receive Date: 20130729
  Receipt Date: 20130729
  Transmission Date: 20140515
  Serious: Yes (Other)
  Sender: FDA-Public Use
  Company Number: US-JNJFOC-20130713329

PATIENT
  Age: 48 Year
  Sex: Male

DRUGS (15)
  1. RISPERDAL [Suspect]
     Indication: PRODUCT USED FOR UNKNOWN INDICATION
     Dosage: 1 TABLET A DAY FOR 1 WEEK THEN EVERY NIGHT AS NEEDED
     Route: 048
  2. SYNTHROID [Concomitant]
     Dosage: 1 HOUR BEFORE EATING IN THE MORNING
     Route: 048
  3. ASPIRIN [Concomitant]
     Dosage: 1 TABLET DAILY
     Route: 048
  4. COREG [Concomitant]
     Dosage: WITH MEALS
     Route: 048
  5. LOTRISONE CREAM (CLOTRIMAZOLE BETAMETHASONE DIPROPIONATE) [Concomitant]
     Route: 061
  6. VITAMIN B12 (CYANOCOBALAMIN AND DERIVATIVES) [Concomitant]
     Route: 060
  7. LANOXIN [Concomitant]
     Route: 048
  8. PROZAC [Concomitant]
     Route: 048
  9. LASIX [Concomitant]
     Route: 048
  10. GLUCOTROL [Concomitant]
     Indication: BLOOD GLUCOSE ABNORMAL
     Dosage: 1/2 TABLET DAILY WITH LARGEST MEAL FOR BLOOD SUGARS
     Route: 048
  11. JANUMET [Concomitant]
     Dosage: 50-1000MG PER TABLET, 1 TABLET WITH MEALS
     Route: 048
  12. LEVOTHROID [Concomitant]
     Dosage: 1 HOUR BEFORE EATING IN THE MORNING
     Route: 048
  13. PRINIVIL [Concomitant]
  14. ZESTRIL [Concomitant]
  15. VITAMIN D3 [Concomitant]
     Route: 048

REACTIONS (3)
  - Supraventricular tachycardia [Unknown]
  - Depression [Unknown]
  - Chest pain [Unknown]
